FAERS Safety Report 5115042-0 (Version None)
Quarter: 2006Q3

REPORT INFORMATION
  Report Type: 
  Country: None (occurrence: None)
  Receive Date: 20060925
  Receipt Date: 20060925
  Transmission Date: 20061208
  Serious: No
  Sender: FDA-Public Use
  Company Number: None

PATIENT
  Sex: Female
  Weight: 59.8748 kg

DRUGS (2)
  1. WELLBUTRIN [Suspect]
     Indication: ANXIETY
     Dosage: 100MG   2XS DAY   PO
     Route: 048
     Dates: start: 20060515, end: 20060615
  2. WELLBUTRIN [Suspect]
     Indication: PREOPERATIVE CARE
     Dosage: 100MG   2XS DAY   PO
     Route: 048
     Dates: start: 20060515, end: 20060615

REACTIONS (6)
  - FEELING ABNORMAL [None]
  - INSOMNIA [None]
  - MANIA [None]
  - PANIC ATTACK [None]
  - PSYCHOMOTOR HYPERACTIVITY [None]
  - WEIGHT DECREASED [None]
